FAERS Safety Report 6603366-7 (Version None)
Quarter: 2010Q1

REPORT INFORMATION
  Report Type: 
  Country: None (occurrence: None)
  Receive Date: 20100226
  Receipt Date: 20090323
  Transmission Date: 20100710
  Serious: No
  Sender: FDA-Public Use
  Company Number: A0771334A

PATIENT
  Age: 65 Year
  Sex: Female

DRUGS (2)
  1. VALTREX [Suspect]
     Indication: HERPES SIMPLEX OPHTHALMIC
     Dosage: 500MG TWICE PER DAY
     Route: 048
     Dates: start: 20090220, end: 20090221
  2. TRIFLURIDINE [Concomitant]

REACTIONS (10)
  - ABDOMINAL TENDERNESS [None]
  - BACK PAIN [None]
  - DRUG INTOLERANCE [None]
  - DYSGEUSIA [None]
  - EPISTAXIS [None]
  - FATIGUE [None]
  - GOUT [None]
  - PAIN [None]
  - RENAL PAIN [None]
  - RESTLESSNESS [None]
